FAERS Safety Report 9960696 (Version 1)
Quarter: 2014Q1

REPORT INFORMATION
  Report Type: Spontaneous
  Country: US (occurrence: US)
  Receive Date: 20140305
  Receipt Date: 20140305
  Transmission Date: 20141002
  Serious: Yes (Other)
  Sender: FDA-Public Use
  Company Number: US-ABBVIE-13P-163-1109034-00

PATIENT
  Age: 57 Year
  Sex: Female

DRUGS (3)
  1. HUMIRA [Suspect]
     Indication: PSORIASIS
     Route: 058
     Dates: start: 20070712, end: 20130602
  2. METFORMIN [Concomitant]
     Indication: DIABETES MELLITUS
  3. ZOCOR [Concomitant]
     Indication: BLOOD CHOLESTEROL INCREASED

REACTIONS (3)
  - Endometrial adenocarcinoma [Not Recovered/Not Resolved]
  - Vaginal haemorrhage [Unknown]
  - Pulmonary mass [Not Recovered/Not Resolved]
